FAERS Safety Report 5954222-9 (Version None)
Quarter: 2008Q4

REPORT INFORMATION
  Report Type: 
  Country: None (occurrence: None)
  Receive Date: 20081113
  Receipt Date: 20081113
  Transmission Date: 20090506
  Serious: Yes (Other)
  Sender: FDA-Public Use
  Company Number: None

PATIENT
  Sex: Female
  Weight: 56.6996 kg

DRUGS (1)
  1. DIGITEK-BERTEK PHARM [Suspect]
     Indication: CARDIAC DISORDER
     Dosage: 250 MCG 1 DAILY
     Dates: end: 20080302

REACTIONS (11)
  - ACTIVITIES OF DAILY LIVING IMPAIRED [None]
  - ANXIETY [None]
  - ASTHENIA [None]
  - BLOOD PRESSURE DECREASED [None]
  - COUGH [None]
  - DYSPNOEA [None]
  - FEELING ABNORMAL [None]
  - HEART RATE INCREASED [None]
  - HYPERTENSION [None]
  - NAUSEA [None]
  - PRODUCT QUALITY ISSUE [None]
